FAERS Safety Report 18657074 (Version 1)
Quarter: 2020Q4

REPORT INFORMATION
  Report Type: Spontaneous
  Country: None (occurrence: US)
  Receive Date: 20201224
  Receipt Date: 20201224
  Transmission Date: 20210114
  Serious: Yes (Hospitalization, Other)
  Sender: FDA-Public Use
  Company Number: US-SANOFI-AVENTIS-2010SA070887

PATIENT

DRUGS (1)
  1. DIPHENHYDRAMINE. [Suspect]
     Active Substance: DIPHENHYDRAMINE
     Dosage: 50 MG/KG, 1X
     Route: 048

REACTIONS (10)
  - Nystagmus [Recovered/Resolved]
  - Flushing [Recovered/Resolved]
  - Electrocardiogram QT prolonged [Recovering/Resolving]
  - Tachycardia [Recovered/Resolved]
  - Skin warm [Recovered/Resolved]
  - Dry skin [Recovered/Resolved]
  - Generalised tonic-clonic seizure [Recovered/Resolved]
  - Mental status changes [Recovered/Resolved]
  - Sinus tachycardia [Unknown]
  - Accidental overdose [Recovered/Resolved]
